FAERS Safety Report 23037825 (Version 1)
Quarter: 2023Q4

REPORT INFORMATION
  Report Type: Spontaneous
  Country: US (occurrence: None)
  Receive Date: 20231005
  Receipt Date: 20231005
  Transmission Date: 20240110
  Serious: Yes (Hospitalization)
  Sender: FDA-Public Use
  Company Number: None

PATIENT
  Age: 25 Year
  Sex: Male

DRUGS (10)
  1. ADEMPAS [Suspect]
     Active Substance: RIOCIGUAT
     Indication: Pulmonary hypertension
     Dosage: FREQUENCY : 3 TIMES A DAY;?
     Route: 048
     Dates: start: 20210331
  2. OPSUMIT [Concomitant]
     Active Substance: MACITENTAN
  3. WARFARIN [Concomitant]
  4. ALBUTEROL SULFATE [Concomitant]
     Active Substance: ALBUTEROL SULFATE
  5. SPIRONOLACTONE [Concomitant]
  6. FERROUS SULFATE [Concomitant]
     Active Substance: FERROUS SULFATE
  7. TORSEMIDE [Concomitant]
  8. ALLOPURINOL [Concomitant]
     Active Substance: ALLOPURINOL
  9. COLCHICINE [Concomitant]
     Active Substance: COLCHICINE
  10. FAMOTIDINE [Concomitant]

REACTIONS (4)
  - Peripheral swelling [None]
  - Pain in extremity [None]
  - Haematoma [None]
  - Compartment syndrome [None]

NARRATIVE: CASE EVENT DATE: 20230904
